FAERS Safety Report 6557209-0 (Version None)
Quarter: 2010Q1

REPORT INFORMATION
  Report Type: 
  Country: None (occurrence: None)
  Receive Date: 20100127
  Receipt Date: 20100127
  Transmission Date: 20100710
  Serious: Yes (Other)
  Sender: FDA-Public Use
  Company Number: None

PATIENT
  Sex: Male
  Weight: 12.38 kg

DRUGS (1)
  1. CEFOTAXIME [Suspect]
     Indication: PNEUMONIA
     Dosage: 500MG 8 HR IV BOLUS
     Route: 040
     Dates: start: 20100108, end: 20100126

REACTIONS (3)
  - BODY TEMPERATURE INCREASED [None]
  - RASH PAPULAR [None]
  - RASH PRURITIC [None]
